FAERS Safety Report 7197840-5 (Version None)
Quarter: 2010Q4

REPORT INFORMATION
  Report Type: 
  Country: None (occurrence: None)
  Receive Date: 20101214
  Receipt Date: 20101129
  Transmission Date: 20110411
  Serious: Yes (Hospitalization)
  Sender: FDA-Public Use
  Company Number: 2010S1000388

PATIENT
  Age: 76 Year
  Sex: Female

DRUGS (3)
  1. DARVOCET-N 100 [Suspect]
     Indication: PAIN
     Dosage: ;PRN; PO
     Route: 048
     Dates: end: 20101101
  2. UNSPECIFIED BLOOD [Concomitant]
  3. PRESSURE MEDICATIONS [Concomitant]

REACTIONS (2)
  - CEREBROVASCULAR ACCIDENT [None]
  - MYOCARDIAL INFARCTION [None]
